FAERS Safety Report 20240232 (Version 1)
Quarter: 2021Q4

REPORT INFORMATION
  Report Type: Spontaneous
  Country: US (occurrence: None)
  Receive Date: 20211227
  Receipt Date: 20211227
  Transmission Date: 20220303
  Serious: Yes (Death, Hospitalization)
  Sender: FDA-Public Use
  Company Number: None

PATIENT
  Age: 68 Year
  Sex: Male

DRUGS (1)
  1. OFEV [Suspect]
     Active Substance: NINTEDANIB
     Indication: Idiopathic pulmonary fibrosis
     Dosage: FREQUENCY : TWICE A DAY;?
     Route: 048
     Dates: start: 20211203, end: 20211206

REACTIONS (5)
  - Respiratory failure [None]
  - Septic shock [None]
  - Tachypnoea [None]
  - Hypoxia [None]
  - White blood cell count decreased [None]

NARRATIVE: CASE EVENT DATE: 20211206
